FAERS Safety Report 18367180 (Version 1)
Quarter: 2020Q4

REPORT INFORMATION
  Report Type: Report from Study
  Country: ES (occurrence: ES)
  Receive Date: 20201009
  Receipt Date: 20201009
  Transmission Date: 20210114
  Serious: Yes (Other)
  Sender: FDA-Public Use
  Company Number: ES-PFIZER INC-2020384303

PATIENT
  Sex: Male

DRUGS (1)
  1. SOMATROPIN. [Suspect]
     Active Substance: SOMATROPIN
     Dosage: 6 MG, UNKNOWN
     Route: 058
     Dates: start: 202002

REACTIONS (5)
  - Injection site mass [Recovering/Resolving]
  - Growth failure [Unknown]
  - Sleep disorder [Recovering/Resolving]
  - Injection site haematoma [Recovering/Resolving]
  - Incorrect route of product administration [Recovering/Resolving]
